FAERS Safety Report 15495241 (Version 1)
Quarter: 2018Q4

REPORT INFORMATION
  Report Type: Spontaneous
  Country: US (occurrence: US)
  Receive Date: 20181012
  Receipt Date: 20181012
  Transmission Date: 20190205
  Serious: Yes (Other)
  Sender: FDA-Public Use
  Company Number: None

PATIENT
  Age: 77 Year
  Sex: Male
  Weight: 139.5 kg

DRUGS (13)
  1. ZYTIGA [Suspect]
     Active Substance: ABIRATERONE ACETATE
     Indication: PROSTATE CANCER
     Route: 048
     Dates: start: 20170629
  2. ATORVASTATIN [Concomitant]
     Active Substance: ATORVASTATIN
  3. LATANOPROST. [Concomitant]
     Active Substance: LATANOPROST
  4. BICALUTAMIDE. [Concomitant]
     Active Substance: BICALUTAMIDE
  5. LEVOTHYROXINE. [Concomitant]
     Active Substance: LEVOTHYROXINE
  6. CARVEDILOL. [Concomitant]
     Active Substance: CARVEDILOL
  7. TIMOLOL. [Concomitant]
     Active Substance: TIMOLOL
  8. HYDROCHLOROTHIAZIDE. [Concomitant]
     Active Substance: HYDROCHLOROTHIAZIDE
  9. ELIQUIS [Concomitant]
     Active Substance: APIXABAN
  10. LISINOPRIL. [Concomitant]
     Active Substance: LISINOPRIL
  11. AMLODIPINE [Concomitant]
     Active Substance: AMLODIPINE BESYLATE
  12. ALLOPURINOL. [Concomitant]
     Active Substance: ALLOPURINOL
  13. CALCIUM [Concomitant]
     Active Substance: CALCIUM

REACTIONS (1)
  - Peripheral swelling [None]

NARRATIVE: CASE EVENT DATE: 20181012
